FAERS Safety Report 24209251 (Version 1)
Quarter: 2024Q3

REPORT INFORMATION
  Report Type: Spontaneous
  Country: IN (occurrence: IN)
  Receive Date: 20240814
  Receipt Date: 20240814
  Transmission Date: 20241016
  Serious: Yes (Death, Other)
  Sender: PFIZER
  Company Number: IN-PFIZER INC-2021168594

PATIENT
  Age: 69 Year
  Sex: Female
  Weight: 77.6 kg

DRUGS (5)
  1. PALBOCICLIB [Suspect]
     Active Substance: PALBOCICLIB
     Indication: Breast cancer metastatic
     Dosage: 125 MG, ONCE A DAY (EVERY MORNING)
     Route: 048
     Dates: start: 20210119
  2. LETERO [Concomitant]
     Dosage: 2.5 MG, 1X/DAY (1 TAB AT BEDTIME)
  3. ZOLEDRONIC ACID [Concomitant]
     Active Substance: ZOLEDRONIC ACID
     Dosage: UNK
  4. CALCIUM\CHOLECALCIFEROL [Concomitant]
     Active Substance: CALCIUM\CHOLECALCIFEROL
     Dosage: 500 MG, 1X/DAY (1 TAB PM (EVERY AFTERNOON))
  5. CALPOL T [Concomitant]
     Dosage: 1 DF (1 TAB BID (TWO TIMES A DAY), 10 DAYS)

REACTIONS (3)
  - Death [Fatal]
  - White blood cell count decreased [Unknown]
  - Off label use [Unknown]

NARRATIVE: CASE EVENT DATE: 20210921
